FAERS Safety Report 15537597 (Version 2)
Quarter: 2018Q4

REPORT INFORMATION
  Report Type: Spontaneous
  Country: US (occurrence: US)
  Receive Date: 20181022
  Receipt Date: 20181026
  Transmission Date: 20190205
  Serious: No
  Sender: FDA-Public Use
  Company Number: US-SUNOVION-2018SUN004017

PATIENT
  Age: 55 Year

DRUGS (4)
  1. VISTARIL [Concomitant]
     Active Substance: HYDROXYZINE PAMOATE
  2. LATUDA [Suspect]
     Active Substance: LURASIDONE HYDROCHLORIDE
     Indication: BIPOLAR DISORDER
     Dosage: UNK
     Route: 048
  3. METFORMIN [Concomitant]
     Active Substance: METFORMIN HYDROCHLORIDE
  4. CARAFATE [Concomitant]
     Active Substance: SUCRALFATE
     Indication: ULCER
     Dosage: UNK

REACTIONS (16)
  - Arthritis [Unknown]
  - Pain [Unknown]
  - Negative thoughts [Unknown]
  - Feeling abnormal [Unknown]
  - Blood glucose increased [Recovered/Resolved]
  - Agitation [Unknown]
  - Product dose omission [Unknown]
  - Anger [Unknown]
  - Chest pain [Recovered/Resolved]
  - Migraine [Recovered/Resolved]
  - Blood glucose decreased [Unknown]
  - Anxiety [Unknown]
  - Amnesia [Unknown]
  - Fatigue [Unknown]
  - Nausea [Recovered/Resolved]
  - Daydreaming [Unknown]
